FAERS Safety Report 7085333-5 (Version None)
Quarter: 2010Q4

REPORT INFORMATION
  Report Type: 
  Country: None (occurrence: None)
  Receive Date: 20101105
  Receipt Date: 20101028
  Transmission Date: 20110411
  Serious: Yes (Hospitalization)
  Sender: FDA-Public Use
  Company Number: JP-PFIZER INC-2010132189

PATIENT
  Age: 75 Year
  Sex: Male

DRUGS (13)
  1. LYRICA [Suspect]
     Indication: POST HERPETIC NEURALGIA
     Dosage: 75 MG, 2X/DAY
     Route: 048
     Dates: start: 20100928, end: 20101002
  2. CYANOCOBALAMIN [Concomitant]
     Route: 048
  3. LOXONIN [Concomitant]
     Route: 048
  4. CELOOP [Concomitant]
  5. ALLEGRA [Concomitant]
     Route: 048
  6. AMITRIPTYLINE HCL [Concomitant]
     Dosage: 10 MG, UNK
     Route: 048
  7. ARTIST [Concomitant]
     Dosage: 10 MG, UNK
     Route: 048
  8. DIOVAN [Concomitant]
     Dosage: 150 MG, UNK
     Route: 048
  9. ATELEC [Concomitant]
     Dosage: 10 MG, UNK
     Route: 048
  10. URSO 250 [Concomitant]
     Dosage: 100 MG, UNK
  11. GLYSENNID [Concomitant]
  12. AZUCURENIN S [Concomitant]
  13. TAKEPRON [Concomitant]
     Dosage: 15 MG, UNK

REACTIONS (6)
  - DECREASED APPETITE [None]
  - DIZZINESS [None]
  - FALL [None]
  - MALAISE [None]
  - NAUSEA [None]
  - SOMNOLENCE [None]
